FAERS Safety Report 14072008 (Version 1)
Quarter: 2017Q4

REPORT INFORMATION
  Report Type: Spontaneous
  Country: US (occurrence: US)
  Receive Date: 20171010
  Receipt Date: 20171010
  Transmission Date: 20180321
  Serious: Yes (Hospitalization, Disabling)
  Sender: FDA-Public Use
  Company Number: None

PATIENT
  Age: 43 Year
  Sex: Female
  Weight: 81 kg

DRUGS (1)
  1. AMITRIPTYLINE [Suspect]
     Active Substance: AMITRIPTYLINE
     Indication: BLADDER PAIN
     Route: 048
     Dates: start: 19990915, end: 20171010

REACTIONS (2)
  - Rash [None]
  - Liver disorder [None]

NARRATIVE: CASE EVENT DATE: 20170922
